FAERS Safety Report 16286716 (Version 7)
Quarter: 2019Q3

REPORT INFORMATION
  Report Type: Report from Study
  Country: US (occurrence: US)
  Receive Date: 20190508
  Receipt Date: 20190920
  Transmission Date: 20191004
  Serious: Yes (Hospitalization)
  Sender: FDA-Public Use
  Company Number: PHEH2019US018778

PATIENT
  Sex: Female
  Weight: 88.89 kg

DRUGS (3)
  1. REVATIO [Concomitant]
     Active Substance: SILDENAFIL CITRATE
     Indication: PRODUCT USED FOR UNKNOWN INDICATION
     Dosage: UNK, TID
     Route: 065
  2. REVATIO [Concomitant]
     Active Substance: SILDENAFIL CITRATE
     Dosage: UNK UNK, BID
     Route: 065
  3. TREPROSTINIL. [Suspect]
     Active Substance: TREPROSTINIL
     Indication: PULMONARY ARTERIAL HYPERTENSION
     Dosage: 84 NG/KG/MIN, CONTINUOUS
     Route: 042
     Dates: start: 20190417

REACTIONS (13)
  - Productive cough [Unknown]
  - Sputum discoloured [Unknown]
  - Pneumonia [Unknown]
  - Drooling [Unknown]
  - Fluid retention [Unknown]
  - Pain in extremity [Recovering/Resolving]
  - Hypoacusis [Unknown]
  - Faeces discoloured [Unknown]
  - Ear infection [Unknown]
  - Dyspnoea [Unknown]
  - Bile output increased [Unknown]
  - Diarrhoea [Unknown]
  - Burning sensation [Unknown]
